FAERS Safety Report 21047999 (Version 1)
Quarter: 2022Q3

REPORT INFORMATION
  Report Type: Spontaneous
  Country: CN (occurrence: CN)
  Receive Date: 20220706
  Receipt Date: 20220706
  Transmission Date: 20221027
  Serious: Yes (Hospitalization)
  Sender: FDA-Public Use
  Company Number: CN-PFIZER INC-PV202200015787

PATIENT
  Age: 33 Year
  Sex: Female
  Weight: 45 kg

DRUGS (1)
  1. METHOTREXATE SODIUM [Suspect]
     Active Substance: METHOTREXATE SODIUM
     Indication: Benign hydatidiform mole
     Dosage: 20.6 MG, 1X/DAY
     Route: 030
     Dates: start: 20220617, end: 20220622

REACTIONS (6)
  - Flushing [Recovering/Resolving]
  - Face oedema [Recovering/Resolving]
  - Rash vesicular [Recovering/Resolving]
  - Mouth ulceration [Recovering/Resolving]
  - Vaginal haemorrhage [Recovering/Resolving]
  - Oropharyngeal pain [Recovering/Resolving]

NARRATIVE: CASE EVENT DATE: 20220621
